FAERS Safety Report 8379166-7 (Version None)
Quarter: 2012Q2

REPORT INFORMATION
  Report Type: 
  Country: None (occurrence: None)
  Receive Date: 20120523
  Receipt Date: 20120511
  Transmission Date: 20120825
  Serious: Yes (Other)
  Sender: FDA-Public Use
  Company Number: US-SANOFI-AVENTIS-2012SA034386

PATIENT
  Sex: Female

DRUGS (4)
  1. SOLOSTAR [Suspect]
  2. INSULIN [Suspect]
     Route: 065
  3. LANTUS [Suspect]
     Dosage: 38 UNITS IN MORNING AND 10 UNITS AT NIGHT
     Route: 058
  4. APIDRA [Suspect]
     Route: 058
     Dates: end: 20120301

REACTIONS (6)
  - CATARACT [None]
  - VISUAL IMPAIRMENT [None]
  - CONDITION AGGRAVATED [None]
  - FALL [None]
  - LOWER LIMB FRACTURE [None]
  - MYOCARDIAL INFARCTION [None]
